FAERS Safety Report 21021251 (Version 1)
Quarter: 2022Q2

REPORT INFORMATION
  Report Type: Spontaneous
  Country: US (occurrence: US)
  Receive Date: 20220629
  Receipt Date: 20220629
  Transmission Date: 20220720
  Serious: Yes (Death, Life-Threatening, Hospitalization, Other)
  Sender: FDA-Public Use
  Company Number: US-AMGEN-USASP2022106012

PATIENT

DRUGS (2)
  1. CARFILZOMIB [Suspect]
     Active Substance: CARFILZOMIB
     Indication: Plasma cell myeloma
     Dosage: UNK
     Route: 065
  2. FILGRASTIM [Suspect]
     Active Substance: FILGRASTIM
     Indication: Neutropenia
     Dosage: UNK
     Route: 065

REACTIONS (18)
  - Aspergillus infection [Fatal]
  - Death [Fatal]
  - Neutropenia [Unknown]
  - Lymphopenia [Unknown]
  - Neurotoxicity [Unknown]
  - Cytokine release syndrome [Unknown]
  - Immune effector cell-associated neurotoxicity syndrome [Unknown]
  - Bacteraemia [Unknown]
  - Bronchopulmonary aspergillosis [Unknown]
  - Respiratory tract infection viral [Unknown]
  - Pneumonia influenzal [Unknown]
  - Sepsis [Unknown]
  - Skin infection [Unknown]
  - Urinary tract infection [Unknown]
  - Infection [Unknown]
  - Hypogammaglobulinaemia [Unknown]
  - Therapeutic product effect incomplete [Unknown]
  - Therapy non-responder [Unknown]
